FAERS Safety Report 14151009 (Version 2)
Quarter: 2018Q2

REPORT INFORMATION
  Report Type: Report from Study
  Country: US (occurrence: US)
  Receive Date: 20171102
  Receipt Date: 20180524
  Transmission Date: 20180711
  Serious: Yes (Hospitalization)
  Sender: FDA-Public Use
  Company Number: PHEH2017US034918

PATIENT
  Sex: Female

DRUGS (1)
  1. MYFORTIC [Suspect]
     Active Substance: MYCOPHENOLATE SODIUM
     Indication: PRODUCT USED FOR UNKNOWN INDICATION
     Dosage: 360 MG, TID
     Route: 048
     Dates: start: 201707, end: 20171023

REACTIONS (3)
  - Pneumonia [Unknown]
  - Ill-defined disorder [Unknown]
  - Gastric haemorrhage [Unknown]
